FAERS Safety Report 18763403 (Version 2)
Quarter: 2022Q1

REPORT INFORMATION
  Report Type: Spontaneous
  Country: US (occurrence: US)
  Receive Date: 20210120
  Receipt Date: 20220317
  Transmission Date: 20220423
  Serious: Yes (Other)
  Sender: FDA-Public Use
  Company Number: US-GLAXOSMITHKLINE-US2021GSK001157

PATIENT
  Sex: Female

DRUGS (32)
  1. ZANTAC [Suspect]
     Active Substance: RANITIDINE HYDROCHLORIDE
     Indication: Dyspepsia
     Dosage: 25 MG, QD
     Route: 065
     Dates: start: 198605, end: 201906
  2. ZANTAC [Suspect]
     Active Substance: RANITIDINE HYDROCHLORIDE
     Indication: Abdominal discomfort
     Dosage: 75 MG, WE
     Route: 065
     Dates: start: 201002, end: 201005
  3. ZANTAC [Suspect]
     Active Substance: RANITIDINE HYDROCHLORIDE
     Dosage: UNK
  4. ZANTAC [Suspect]
     Active Substance: RANITIDINE HYDROCHLORIDE
     Dosage: UNK
  5. ZANTAC [Suspect]
     Active Substance: RANITIDINE HYDROCHLORIDE
     Indication: Dyspepsia
     Dosage: 25 MG, QD
     Route: 065
     Dates: start: 198605, end: 201906
  6. ZANTAC [Suspect]
     Active Substance: RANITIDINE HYDROCHLORIDE
     Indication: Abdominal discomfort
     Dosage: 75 MG, WE
     Route: 065
     Dates: start: 201002, end: 201005
  7. ZANTAC [Suspect]
     Active Substance: RANITIDINE HYDROCHLORIDE
     Dosage: UNK
  8. ZANTAC [Suspect]
     Active Substance: RANITIDINE HYDROCHLORIDE
     Dosage: UNK
  9. RANITIDINE [Suspect]
     Active Substance: RANITIDINE
     Indication: Dyspepsia
     Dosage: 75 MG, WE
     Route: 065
     Dates: start: 200202, end: 201411
  10. RANITIDINE [Suspect]
     Active Substance: RANITIDINE
     Indication: Abdominal discomfort
     Dosage: 75 MG, WE
     Route: 065
     Dates: start: 200202, end: 201411
  11. RANITIDINE [Suspect]
     Active Substance: RANITIDINE
     Dosage: UNK
  12. RANITIDINE [Suspect]
     Active Substance: RANITIDINE
     Dosage: UNK
  13. RANITIDINE [Suspect]
     Active Substance: RANITIDINE
     Indication: Dyspepsia
     Dosage: 75 MG, WE
     Route: 065
     Dates: start: 200202, end: 201411
  14. RANITIDINE [Suspect]
     Active Substance: RANITIDINE
     Indication: Abdominal discomfort
     Dosage: 75 MG, WE
     Route: 065
     Dates: start: 200202, end: 201411
  15. RANITIDINE [Suspect]
     Active Substance: RANITIDINE
     Dosage: UNK
  16. RANITIDINE [Suspect]
     Active Substance: RANITIDINE
     Dosage: UNK
  17. ZANTAC [Suspect]
     Active Substance: RANITIDINE HYDROCHLORIDE
     Indication: Dyspepsia
     Dosage: 75 MG, WE
     Route: 065
     Dates: start: 201002, end: 201005
  18. ZANTAC [Suspect]
     Active Substance: RANITIDINE HYDROCHLORIDE
     Indication: Abdominal discomfort
     Dosage: 75 MG, WE
     Route: 065
     Dates: start: 201002, end: 201005
  19. ZANTAC [Suspect]
     Active Substance: RANITIDINE HYDROCHLORIDE
     Dosage: UNK
  20. ZANTAC [Suspect]
     Active Substance: RANITIDINE HYDROCHLORIDE
     Dosage: UNK
  21. RANITIDINE [Suspect]
     Active Substance: RANITIDINE
     Indication: Dyspepsia
     Dosage: 25 MG, QD
     Route: 065
     Dates: start: 198605, end: 201906
  22. RANITIDINE [Suspect]
     Active Substance: RANITIDINE
     Indication: Abdominal discomfort
     Dosage: 75 MG, WE
     Route: 065
     Dates: start: 201002, end: 201005
  23. RANITIDINE [Suspect]
     Active Substance: RANITIDINE
     Dosage: 75 MG, WE
     Route: 065
     Dates: start: 201002, end: 201005
  24. RANITIDINE [Suspect]
     Active Substance: RANITIDINE
     Dosage: 75 MG, WE
     Route: 065
     Dates: start: 200202, end: 201411
  25. RANITIDINE [Suspect]
     Active Substance: RANITIDINE
     Indication: Dyspepsia
     Dosage: 25 MG, QD
     Route: 065
     Dates: start: 198605, end: 201906
  26. RANITIDINE [Suspect]
     Active Substance: RANITIDINE
     Indication: Abdominal discomfort
     Dosage: 75 MG, WE
     Route: 065
     Dates: start: 200202, end: 201411
  27. RANITIDINE [Suspect]
     Active Substance: RANITIDINE
     Dosage: UNK
  28. RANITIDINE [Suspect]
     Active Substance: RANITIDINE
     Dosage: UNK
  29. RANITIDINE [Suspect]
     Active Substance: RANITIDINE
     Indication: Dyspepsia
     Dosage: 25 MG/ML, QD
     Route: 065
     Dates: start: 198605, end: 201906
  30. RANITIDINE [Suspect]
     Active Substance: RANITIDINE
     Dosage: UNK
  31. RANITIDINE [Suspect]
     Active Substance: RANITIDINE
     Dosage: UNK
  32. RANITIDINE [Suspect]
     Active Substance: RANITIDINE
     Dosage: UNK

REACTIONS (3)
  - Bladder cancer [Unknown]
  - Prostate cancer [Unknown]
  - Colorectal cancer [Unknown]
